FAERS Safety Report 18312620 (Version 2)
Quarter: 2020Q4

REPORT INFORMATION
  Report Type: Spontaneous
  Country: JP (occurrence: JP)
  Receive Date: 20200925
  Receipt Date: 20201015
  Transmission Date: 20210113
  Serious: Yes (Death, Other)
  Sender: FDA-Public Use
  Company Number: JP-ASTRAZENECA-2020SF23188

PATIENT
  Age: 74 Year
  Sex: Male

DRUGS (12)
  1. FEBURIC [Concomitant]
     Active Substance: FEBUXOSTAT
     Dosage: 20.0MG UNKNOWN
  2. SEROQUEL [Suspect]
     Active Substance: QUETIAPINE FUMARATE
     Indication: PRODUCT USED FOR UNKNOWN INDICATION
     Dosage: 50.0MG UNKNOWN
     Route: 048
     Dates: start: 20200910
  3. TRANCOLON [Suspect]
     Active Substance: MEPENZOLATE BROMIDE
     Indication: PRODUCT USED FOR UNKNOWN INDICATION
     Route: 048
  4. LOXONIN [Concomitant]
     Active Substance: LOXOPROFEN SODIUM
     Dosage: 60.0MG UNKNOWN
  5. SODIUM RABEPRAZOLE [Concomitant]
     Active Substance: RABEPRAZOLE SODIUM
     Dosage: 10.0MG UNKNOWN
  6. OXYCODONE [Concomitant]
     Active Substance: OXYCODONE
     Dosage: 5.0MG UNKNOWN
  7. DECADRON [Concomitant]
     Active Substance: DEXAMETHASONE
     Dosage: 0.5MG UNKNOWN
  8. METHYCOBAL [Concomitant]
     Active Substance: METHYLCOBALAMIN
     Dosage: 0.5MG UNKNOWN
     Route: 048
  9. NAUZELIN [Concomitant]
     Active Substance: DOMPERIDONE
     Dosage: 10.0MG UNKNOWN
  10. MYSLEE [Suspect]
     Active Substance: ZOLPIDEM TARTRATE
     Indication: PRODUCT USED FOR UNKNOWN INDICATION
     Route: 048
  11. NAIXAN [Concomitant]
     Active Substance: NAPROXEN SODIUM
     Dosage: 100.0MG UNKNOWN
  12. OXINORM [Concomitant]
     Dosage: 2.5MG UNKNOWN

REACTIONS (3)
  - Death [Fatal]
  - Drug interaction [Unknown]
  - Urinary retention [Unknown]
